FAERS Safety Report 20306576 (Version 1)
Quarter: 2022Q1

REPORT INFORMATION
  Report Type: Spontaneous
  Country: NL (occurrence: NL)
  Receive Date: 20220106
  Receipt Date: 20220106
  Transmission Date: 20220424
  Serious: Yes (Life-Threatening, Hospitalization)
  Sender: FDA-Public Use
  Company Number: NL-NOVARTISPH-PHHY2019NL009271

PATIENT
  Age: 51 Year
  Sex: Female

DRUGS (2)
  1. AMLODIPINE [Suspect]
     Active Substance: AMLODIPINE BESYLATE
     Indication: Suicide attempt
     Dosage: 30 DF, UNK (30 TABLETS OF AMLODIPINE 5 MG )
     Route: 048
  2. INDAPAMIDE\PERINDOPRIL ERBUMINE [Suspect]
     Active Substance: INDAPAMIDE\PERINDOPRIL ERBUMINE
     Indication: Suicide attempt
     Dosage: 80 DF, UNK (80 TABLETS OF PERINDOPRIL/INDAPAMIDE (4/1.25 MG))
     Route: 048

REACTIONS (10)
  - Suicide attempt [Unknown]
  - Anuria [Unknown]
  - Metabolic acidosis [Unknown]
  - Shock [Unknown]
  - Cardiogenic shock [Unknown]
  - Bradycardia [Unknown]
  - Left ventricular dysfunction [Unknown]
  - Distributive shock [Unknown]
  - Intentional overdose [Unknown]
  - Toxicity to various agents [Unknown]
